FAERS Safety Report 9108385 (Version 1)
Quarter: 2013Q1

REPORT INFORMATION
  Report Type: Spontaneous
  Country: US (occurrence: US)
  Receive Date: 20130222
  Receipt Date: 20130222
  Transmission Date: 20140127
  Serious: Yes (Other)
  Sender: FDA-Public Use
  Company Number: US-ROXANE LABORATORIES, INC.-2013-RO-00271RO

PATIENT
  Age: 56 Year
  Sex: Male

DRUGS (4)
  1. PREDNISONE [Suspect]
     Indication: BRONCHITIS
  2. MOXIFLOXACIN [Suspect]
     Indication: CATARACT
     Route: 047
  3. LEVOTHYROXINE [Suspect]
     Indication: HYPOTHYROIDISM
  4. STEROID [Suspect]
     Indication: INTERVERTEBRAL DISC PROTRUSION

REACTIONS (1)
  - Tendon disorder [Not Recovered/Not Resolved]
